FAERS Safety Report 15825735 (Version 1)
Quarter: 2019Q1

REPORT INFORMATION
  Report Type: Spontaneous
  Country: US (occurrence: US)
  Receive Date: 20190114
  Receipt Date: 20190114
  Transmission Date: 20190417
  Serious: Yes (Death)
  Sender: FDA-Public Use
  Company Number: None

PATIENT
  Age: 63 Year
  Sex: Male
  Weight: 64.2 kg

DRUGS (8)
  1. METHYLPREDNISOLONE SODIUM SUCCINATE. [Suspect]
     Active Substance: METHYLPREDNISOLONE SODIUM SUCCINATE
     Indication: HYPERSENSITIVITY
     Dosage: ?          OTHER FREQUENCY:Q4H;?
     Route: 040
  2. ONDANSETRON ODT 16 MG PO [Concomitant]
     Dates: start: 20181017, end: 20181017
  3. DIPHENHYDRAMINE 50 MG IV [Concomitant]
     Dates: start: 20181017, end: 20181017
  4. FAMOTIDINE 20 MG IV [Concomitant]
     Dates: start: 20181017, end: 20181017
  5. RIVAROXABAN 20 MG PO [Concomitant]
     Dates: start: 20181017, end: 20181017
  6. ACETAMINOPHEN 650 MG PO [Concomitant]
     Dates: start: 20181017, end: 20181017
  7. MONTELUKAST 10 MG PO [Concomitant]
     Dates: start: 20181017, end: 20181017
  8. XELODA 1650MG PO (PATIENT^S OWN MEDICATION) [Concomitant]
     Dates: start: 20181017, end: 20181017

REACTIONS (6)
  - Tongue pruritus [None]
  - Agitation [None]
  - Loss of consciousness [None]
  - Vomiting [None]
  - Cardio-respiratory arrest [None]
  - Erythema [None]

NARRATIVE: CASE EVENT DATE: 20181017
